FAERS Safety Report 8538402 (Version 2)
Quarter: 2012Q4

REPORT INFORMATION
  Report Type: 
  Country: US (occurrence: US)
  Receive Date: 20120501
  Receipt Date: 20120903
  Transmission Date: 20130627
  Serious: No
  Sender: FDA-Public Use
  Company Number: US-BIOGENIDEC-2012BI013642

PATIENT
  Age: 46 Year
  Sex: Female

DRUGS (5)
  1. TYSABRI [Suspect]
     Indication: MULTIPLE SCLEROSIS
     Route: 042
     Dates: start: 20050125
  2. TYSABRI [Suspect]
     Indication: MULTIPLE SCLEROSIS
     Route: 042
     Dates: start: 20110729
  3. AVONEX [Concomitant]
     Indication: MULTIPLE SCLEROSIS
     Route: 030
     Dates: start: 20061020
  4. NEUROTIN [Concomitant]
     Indication: MULTIPLE SCLEROSIS RELAPSE
  5. MEDICATION (NOS) [Concomitant]
     Indication: BIPOLAR DISORDER

REACTIONS (14)
  - Burning sensation [Not Recovered/Not Resolved]
  - Band sensation [Not Recovered/Not Resolved]
  - Excoriation [Unknown]
  - Contusion [Unknown]
  - Face injury [Recovered/Resolved]
  - Gastrointestinal disorder [Not Recovered/Not Resolved]
  - Micturition urgency [Not Recovered/Not Resolved]
  - Periorbital contusion [Unknown]
  - Depressed mood [Unknown]
  - Feeling abnormal [Unknown]
  - Back pain [Not Recovered/Not Resolved]
  - Stress [Unknown]
  - Musculoskeletal chest pain [Not Recovered/Not Resolved]
  - Multiple sclerosis relapse [Not Recovered/Not Resolved]
